FAERS Safety Report 7364980-7 (Version None)
Quarter: 2011Q1

REPORT INFORMATION
  Report Type: 
  Country: None (occurrence: None)
  Receive Date: 20110321
  Receipt Date: 20110308
  Transmission Date: 20110831
  Serious: Yes (Hospitalization, Other)
  Sender: FDA-Public Use
  Company Number: US-JNJFOC-20060205119

PATIENT
  Sex: Female
  Weight: 52 kg

DRUGS (3)
  1. PREDNISONE [Concomitant]
  2. INFLIXIMAB [Suspect]
     Indication: COLITIS
     Route: 042
  3. MERCAPTOPURINE [Concomitant]

REACTIONS (1)
  - ANAEMIA [None]
